FAERS Safety Report 8015421-8 (Version None)
Quarter: 2011Q4

REPORT INFORMATION
  Report Type: 
  Country: None (occurrence: None)
  Receive Date: 20111230
  Receipt Date: 20111216
  Transmission Date: 20120403
  Serious: Yes (Other)
  Sender: FDA-Public Use
  Company Number: ES-MYLANLABS-2011S1026081

PATIENT
  Age: 77 Year
  Sex: Female
  Weight: 75 kg

DRUGS (6)
  1. AMIODARONE HCL [Concomitant]
     Dosage: 200 MG/DAY
     Route: 065
  2. GLYBURIDE [Concomitant]
     Dosage: 5 MG/DAY
     Route: 065
  3. ESCITALOPRAM [Concomitant]
     Indication: MAJOR DEPRESSION
     Dosage: 10 MG/DAY
     Route: 065
  4. OMEPRAZOLE [Concomitant]
     Dosage: 20 MG/DAY
     Route: 065
  5. TRAZODONE HCL [Suspect]
     Indication: MAJOR DEPRESSION
     Dosage: 100 MG/DAY
     Route: 065
  6. CARBAMAZEPINE [Interacting]
     Route: 065

REACTIONS (4)
  - TREMOR [None]
  - ATAXIA [None]
  - DRUG INTERACTION [None]
  - DRUG LEVEL INCREASED [None]
